FAERS Safety Report 6035088-8 (Version None)
Quarter: 2009Q1

REPORT INFORMATION
  Report Type: 
  Country: None (occurrence: None)
  Receive Date: 20090112
  Receipt Date: 20090107
  Transmission Date: 20090719
  Serious: Yes (Death, Other)
  Sender: FDA-Public Use
  Company Number: JP-ROXANE LABORATORIES, INC.-2009-RO-00023RO

PATIENT
  Age: 18 Year
  Sex: Female

DRUGS (11)
  1. METHOTREXATE [Suspect]
     Indication: CENTRAL NERVOUS SYSTEM LEUKAEMIA
     Route: 037
  2. CYCLOPHOSPHAMIDE [Suspect]
     Indication: BONE MARROW CONDITIONING REGIMEN
     Dates: start: 20031101
  3. CYCLOSPORINE [Suspect]
     Indication: PROPHYLAXIS AGAINST GRAFT VERSUS HOST DISEASE
  4. CYTARABINE [Suspect]
     Indication: CENTRAL NERVOUS SYSTEM LEUKAEMIA
     Route: 037
  5. HYDROCORTISONE [Suspect]
     Indication: CENTRAL NERVOUS SYSTEM LEUKAEMIA
     Route: 037
  6. LOOP DIURETIC [Suspect]
     Indication: OLIGURIA
  7. LOOP DIURETIC [Suspect]
     Indication: CARDIAC FAILURE CONGESTIVE
  8. DOPAMINE HCL [Suspect]
     Indication: CARDIAC FAILURE CONGESTIVE
  9. DOPAMINE HCL [Suspect]
     Indication: OLIGURIA
  10. DOBUTAMINE HCL [Suspect]
     Indication: CARDIAC FAILURE CONGESTIVE
  11. DOBUTAMINE HCL [Suspect]
     Indication: OLIGURIA

REACTIONS (11)
  - ANURIA [None]
  - AZOTAEMIA [None]
  - BLOOD CREATININE INCREASED [None]
  - CARDIAC FAILURE CONGESTIVE [None]
  - CENTRAL NERVOUS SYSTEM LEUKAEMIA [None]
  - CONVULSION [None]
  - GRAFT VERSUS HOST DISEASE [None]
  - LEUKAEMIA RECURRENT [None]
  - OLIGURIA [None]
  - RETINAL DETACHMENT [None]
  - TUMOUR LYSIS SYNDROME [None]
